FAERS Safety Report 8302352-9 (Version None)
Quarter: 2012Q2

REPORT INFORMATION
  Report Type: 
  Country: None (occurrence: None)
  Receive Date: 20120420
  Receipt Date: 20120417
  Transmission Date: 20120825
  Serious: Yes (Death)
  Sender: FDA-Public Use
  Company Number: GB-JNJFOC-20120407720

PATIENT
  Sex: Female

DRUGS (1)
  1. PALIPERIDONE [Suspect]
     Indication: SCHIZOPHRENIA
     Route: 030

REACTIONS (1)
  - COMPLETED SUICIDE [None]
